FAERS Safety Report 4422108-7 (Version None)
Quarter: 2004Q3

REPORT INFORMATION
  Report Type: 
  Country: None (occurrence: None)
  Receive Date: 20040712
  Receipt Date: 20040505
  Transmission Date: 20050211
  Serious: No
  Sender: FDA-Public Use
  Company Number: TAP2004Q00549

PATIENT
  Age: 8 Month
  Sex: Male

DRUGS (3)
  1. PREVACID [Suspect]
     Indication: GASTROOESOPHAGEAL REFLUX DISEASE
     Dosage: 15 MG, OFF AND ON
     Dates: start: 20030101, end: 20030101
  2. PULMICORT [Concomitant]
  3. XOPENEX [Concomitant]

REACTIONS (1)
  - NEUTROPENIA [None]
